FAERS Safety Report 7365828-7 (Version None)
Quarter: 2011Q1

REPORT INFORMATION
  Report Type: 
  Country: None (occurrence: None)
  Receive Date: 20110316
  Receipt Date: 20110316
  Transmission Date: 20110831
  Serious: Yes (Other)
  Sender: FDA-Public Use
  Company Number: None

PATIENT
  Sex: Male
  Weight: 67.7 kg

DRUGS (1)
  1. TACROLIMUS [Suspect]
     Dosage: 0.5MG PO
     Route: 048

REACTIONS (2)
  - DECREASED APPETITE [None]
  - HYPERKALAEMIA [None]
